FAERS Safety Report 5241144-4 (Version None)
Quarter: 2007Q1

REPORT INFORMATION
  Report Type: 
  Country: None (occurrence: None)
  Receive Date: 20070220
  Receipt Date: 20070207
  Transmission Date: 20070707
  Serious: Yes (Other)
  Sender: FDA-Public Use
  Company Number: CA-JNJFOC-20060400184

PATIENT
  Age: 67 Year
  Sex: Female

DRUGS (6)
  1. REMICADE [Suspect]
     Indication: RHEUMATOID ARTHRITIS
  2. PREDNISONE [Concomitant]
  3. IMMUNOSUPPRESSANTS [Concomitant]
  4. ALENDRONATE SODIUM [Concomitant]
  5. VITAMIN D [Concomitant]
  6. CALCIUM [Concomitant]

REACTIONS (6)
  - ABDOMINAL PAIN [None]
  - ABSCESS [None]
  - BACK PAIN [None]
  - MENINGEAL NEOPLASM [None]
  - SPINAL COMPRESSION FRACTURE [None]
  - TUBERCULOSIS [None]
